FAERS Safety Report 5458600-6 (Version None)
Quarter: 2007Q3

REPORT INFORMATION
  Report Type: 
  Country: None (occurrence: None)
  Receive Date: 20070919
  Receipt Date: 20070404
  Transmission Date: 20080115
  Serious: No
  Sender: FDA-Public Use
  Company Number: US-ASTRAZENECA-2007UW06739

PATIENT
  Age: 45 Year
  Sex: Female

DRUGS (7)
  1. SEROQUEL [Suspect]
     Route: 048
  2. OTHER DRUGS [Interacting]
  3. PAXIL [Concomitant]
  4. ESTRATEST [Concomitant]
  5. TOPAMAX [Concomitant]
  6. SINGULAIR [Concomitant]
  7. ZANTAC 150 [Concomitant]

REACTIONS (2)
  - DRUG INTERACTION [None]
  - HALLUCINATION [None]
